FAERS Safety Report 6992411-5 (Version None)
Quarter: 2010Q3

REPORT INFORMATION
  Report Type: 
  Country: None (occurrence: None)
  Receive Date: 20100917
  Receipt Date: 20100906
  Transmission Date: 20110219
  Serious: Yes (Life-Threatening, Hospitalization)
  Sender: FDA-Public Use
  Company Number: PHHY2010DE60409

PATIENT
  Age: 79 Year
  Sex: Female
  Weight: 64 kg

DRUGS (7)
  1. DIOVAN HCT [Suspect]
     Dosage: 160/12.5 MG
     Route: 048
     Dates: start: 20100316, end: 20100410
  2. DIOVAN HCT [Suspect]
     Dosage: 160/25 MG
     Route: 048
     Dates: start: 20100414, end: 20100420
  3. DIOVAN [Suspect]
     Dosage: 160 MG
     Route: 048
     Dates: start: 20100413, end: 20100414
  4. XENETIX [Suspect]
     Dosage: 300 UNK, UNK
     Dates: start: 20100429
  5. MEROPENEM [Suspect]
     Dosage: 500 MG
     Dates: start: 20100420, end: 20100502
  6. ROCEPHIN [Suspect]
     Dosage: 2 G
     Dates: start: 20100413, end: 20100420
  7. KLACID FORTE [Suspect]
     Dosage: 500 MG
     Dates: start: 20100414, end: 20100420

REACTIONS (11)
  - ANGIOPLASTY [None]
  - DIALYSIS [None]
  - ESCHERICHIA URINARY TRACT INFECTION [None]
  - HYPERTENSION [None]
  - NAUSEA [None]
  - OLIGURIA [None]
  - RENAL ARTERY STENOSIS [None]
  - RENAL ARTERY STENT PLACEMENT [None]
  - RENAL ATROPHY [None]
  - RENAL FAILURE ACUTE [None]
  - URINE OUTPUT DECREASED [None]
